FAERS Safety Report 8813930 (Version 2)
Quarter: 2015Q2

REPORT INFORMATION
  Report Type: Report from Study
  Country: US (occurrence: US)
  Receive Date: 20120928
  Receipt Date: 20150406
  Transmission Date: 20150821
  Serious: Yes (Death)
  Sender: FDA-Public Use
  Company Number: US-ROCHE-1095330

PATIENT
  Sex: Female

DRUGS (14)
  1. BENADRYL [Concomitant]
     Active Substance: DIPHENHYDRAMINE HYDROCHLORIDE
     Route: 042
     Dates: start: 20050921
  2. NEULASTA [Concomitant]
     Active Substance: PEGFILGRASTIM
     Route: 058
     Dates: start: 20050922
  3. NAVELBINE [Concomitant]
     Active Substance: VINORELBINE TARTRATE
  4. HERCEPTIN [Suspect]
     Active Substance: TRASTUZUMAB
     Indication: BREAST CANCER FEMALE
     Dosage: 105MG MAINTAINANCE DOSE
     Route: 042
     Dates: start: 20050505
  5. ZOMETA [Concomitant]
     Active Substance: ZOLEDRONIC ACID
     Route: 042
     Dates: start: 20051012
  6. HERCEPTIN [Suspect]
     Active Substance: TRASTUZUMAB
     Route: 042
  7. TAGAMET [Concomitant]
     Active Substance: CIMETIDINE
     Route: 042
     Dates: start: 20050921
  8. ALOXI [Concomitant]
     Active Substance: PALONOSETRON HYDROCHLORIDE
     Route: 042
     Dates: start: 20050922
  9. REGLAN [Concomitant]
     Active Substance: METOCLOPRAMIDE HYDROCHLORIDE
     Route: 042
     Dates: start: 20050928
  10. DECADRON [Concomitant]
     Active Substance: DEXAMETHASONE
     Route: 042
     Dates: start: 20050921
  11. MORPHINE [Concomitant]
     Active Substance: MORPHINE
     Route: 042
     Dates: start: 20050928
  12. ARANESP [Concomitant]
     Active Substance: DARBEPOETIN ALFA
     Route: 058
     Dates: start: 20050914
  13. PACLITAXEL. [Concomitant]
     Active Substance: PACLITAXEL
     Route: 042
     Dates: start: 20050921
  14. PARAPLATIN [Concomitant]
     Active Substance: CARBOPLATIN
     Route: 042
     Dates: start: 20050921

REACTIONS (2)
  - Death [Fatal]
  - Headache [Unknown]
